FAERS Safety Report 4972394-X (Version None)
Quarter: 2006Q2

REPORT INFORMATION
  Report Type: 
  Country: None (occurrence: None)
  Receive Date: 20060413
  Receipt Date: 20041228
  Transmission Date: 20061013
  Serious: Yes (Death, Life-Threatening, Hospitalization)
  Sender: FDA-Public Use
  Company Number: US-MERCK-0412USA03191

PATIENT
  Age: 63 Year
  Sex: Male
  Weight: 96 kg

DRUGS (17)
  1. VIOXX [Suspect]
     Indication: ARTHRITIS
     Route: 048
     Dates: start: 20000817, end: 20020930
  2. VIOXX [Suspect]
     Route: 048
     Dates: start: 20000817, end: 20020930
  3. ATUSS EX [Concomitant]
     Route: 065
  4. NEURONTIN [Concomitant]
     Indication: PAIN
     Route: 065
     Dates: start: 20010421, end: 20020911
  5. DILANTIN [Concomitant]
     Indication: PAIN
     Route: 065
  6. DILANTIN [Concomitant]
     Indication: TREMOR
     Route: 065
  7. VITAMIN B (UNSPECIFIED) [Concomitant]
     Route: 065
  8. DIOVAN [Concomitant]
     Indication: HYPERTENSION
     Route: 065
     Dates: start: 20020913
  9. DARVOCET [Concomitant]
     Indication: PAIN
     Route: 065
     Dates: start: 20020913, end: 20020913
  10. NAPROSYN [Concomitant]
     Indication: PAIN
     Route: 065
     Dates: end: 20010321
  11. NAPROSYN [Concomitant]
     Route: 065
     Dates: start: 20020913, end: 20020913
  12. ALLEGRA [Concomitant]
     Route: 065
  13. CLEMASTINE [Concomitant]
     Route: 065
  14. METOCLOPRAMIDE [Concomitant]
     Route: 065
  15. BEROCCA PLUS TABLETS [Concomitant]
     Route: 065
  16. HYDROCODONE BITARTRATE [Concomitant]
     Route: 065
  17. ZIAC [Concomitant]
     Route: 065

REACTIONS (39)
  - ACUTE MYOCARDIAL INFARCTION [None]
  - BRAIN STEM INFARCTION [None]
  - CARDIAC ARREST [None]
  - CARDIAC FAILURE CONGESTIVE [None]
  - CEREBRAL ATROPHY [None]
  - CEREBROVASCULAR ACCIDENT [None]
  - COMA [None]
  - DECUBITUS ULCER [None]
  - DIABETES MELLITUS [None]
  - DYSPNOEA [None]
  - EMOTIONAL DISTRESS [None]
  - FACIAL PALSY [None]
  - GASTROENTERITIS BACTERIAL [None]
  - GASTROINTESTINAL DISORDER [None]
  - HAEMATURIA [None]
  - HYPERCHOLESTEROLAEMIA [None]
  - HYPERTENSION [None]
  - HYPONATRAEMIA [None]
  - HYPOTENSION [None]
  - INCREASED BRONCHIAL SECRETION [None]
  - INFLUENZA [None]
  - ISCHAEMIA [None]
  - ISCHAEMIC CARDIOMYOPATHY [None]
  - LEUKOCYTOSIS [None]
  - LOCKED-IN SYNDROME [None]
  - METABOLIC ALKALOSIS [None]
  - OBESITY [None]
  - OBSTRUCTIVE AIRWAYS DISORDER [None]
  - PARALYSIS [None]
  - PNEUMONIA ASPIRATION [None]
  - PSEUDOMONAS INFECTION [None]
  - PYELONEPHRITIS [None]
  - RESPIRATORY FAILURE [None]
  - RESPIRATORY TRACT INFECTION [None]
  - SHOCK [None]
  - STAPHYLOCOCCAL BACTERAEMIA [None]
  - TRACHEITIS [None]
  - VERTEBRAL ARTERY THROMBOSIS [None]
  - VITH NERVE PARALYSIS [None]
